FAERS Safety Report 10555457 (Version 1)
Quarter: 2014Q4

REPORT INFORMATION
  Report Type: Spontaneous
  Country: FR (occurrence: FR)
  Receive Date: 20141030
  Receipt Date: 20141030
  Transmission Date: 20150529
  Serious: Yes (Disabling)
  Sender: FDA-Public Use
  Company Number: FR-GE HEALTHCARE MEDICAL DIAGNOSTICS-OSCN-PR-1410S-0164

PATIENT
  Age: 60 Year
  Sex: Female

DRUGS (2)
  1. OMNISCAN [Suspect]
     Active Substance: GADODIAMIDE
     Indication: DIAGNOSTIC PROCEDURE
  2. OMNISCAN [Suspect]
     Active Substance: GADODIAMIDE
     Indication: PRODUCT USED FOR UNKNOWN INDICATION
     Route: 042
     Dates: start: 201407, end: 201407

REACTIONS (6)
  - Muscular weakness [Unknown]
  - Incorrect dose administered [Unknown]
  - Blister [Unknown]
  - Joint range of motion decreased [Not Recovered/Not Resolved]
  - Erythema [Unknown]
  - Extravasation [Unknown]

NARRATIVE: CASE EVENT DATE: 2014
